FAERS Safety Report 7238945-X (Version None)
Quarter: 2011Q1

REPORT INFORMATION
  Report Type: 
  Country: None (occurrence: None)
  Receive Date: 20110121
  Receipt Date: 20110118
  Transmission Date: 20110831
  Serious: Yes (Hospitalization, Other)
  Sender: FDA-Public Use
  Company Number: US-ROXANE LABORATORIES, INC.-2011-RO-00081RO

PATIENT
  Age: 28 Year
  Sex: Female

DRUGS (6)
  1. PREDNISONE [Suspect]
     Indication: PANCREAS TRANSPLANT
  2. MYCOPHENOLATE MOFETIL [Suspect]
     Indication: RENAL TRANSPLANT
  3. TACROLIMUS [Suspect]
     Indication: RENAL TRANSPLANT
  4. PREDNISONE [Suspect]
     Indication: RENAL TRANSPLANT
  5. TACROLIMUS [Suspect]
     Indication: PANCREAS TRANSPLANT
  6. MYCOPHENOLATE MOFETIL [Suspect]
     Indication: PANCREAS TRANSPLANT
     Dosage: 3000 MG

REACTIONS (3)
  - LEUKOPENIA [None]
  - COLITIS [None]
  - TRANSPLANT REJECTION [None]
